FAERS Safety Report 10241480 (Version 1)
Quarter: 2014Q2

REPORT INFORMATION
  Report Type: Spontaneous
  Country: JP (occurrence: None)
  Receive Date: 20140613
  Receipt Date: 20140613
  Transmission Date: 20141212
  Serious: Yes (Hospitalization, Disabling, Other)
  Sender: FDA-Public Use
  Company Number: 2013TJP003286

PATIENT
  Age: 73 Year
  Sex: Female

DRUGS (5)
  1. NESINA [Suspect]
     Indication: DIABETES MELLITUS
     Route: 048
     Dates: start: 20131017, end: 20131111
  2. BLOPRESS [Concomitant]
  3. ALINAMI-F [Concomitant]
  4. BENIDIPINE HYDROCHLORIDE [Concomitant]
  5. LENDORMIN (BROTIZOLAM) [Concomitant]

REACTIONS (7)
  - Interstitial lung disease [None]
  - Pancreatitis [None]
  - Dyspnoea exertional [None]
  - Chest X-ray abnormal [None]
  - Cough [None]
  - Oxygen saturation decreased [None]
  - Lung disorder [None]
